FAERS Safety Report 16857408 (Version 3)
Quarter: 2019Q4

REPORT INFORMATION
  Report Type: Report from Study
  Country: PL (occurrence: PL)
  Receive Date: 20190926
  Receipt Date: 20191003
  Transmission Date: 20200122
  Serious: Yes (Death, Hospitalization)
  Sender: FDA-Public Use
  Company Number: PL-EISAI MEDICAL RESEARCH-EC-2019-062713

PATIENT
  Age: 71 Year
  Sex: Female
  Weight: 53 kg

DRUGS (12)
  1. PEMBROLIZUMAB. [Suspect]
     Active Substance: PEMBROLIZUMAB
     Route: 041
     Dates: start: 20190827, end: 20190827
  2. LENVATINIB [Suspect]
     Active Substance: LENVATINIB
     Indication: TRANSITIONAL CELL CARCINOMA
     Route: 048
     Dates: start: 20190716
  3. ROSWERA [Concomitant]
     Active Substance: ROSUVASTATIN
     Dates: start: 201001
  4. POLOCARD [Concomitant]
     Active Substance: ASPIRIN
     Dates: start: 201401
  5. OSAGRAND [Concomitant]
     Dates: start: 201401
  6. PEMBROLIZUMAB. [Suspect]
     Active Substance: PEMBROLIZUMAB
     Route: 041
     Dates: start: 20190918
  7. BISOCARD [Concomitant]
     Active Substance: BISOPROLOL
     Dates: start: 201401
  8. THEOVENT [Concomitant]
     Active Substance: THEOPHYLLINE ANHYDROUS
     Dates: start: 200401
  9. PREDUCTAL MR [Concomitant]
     Active Substance: TRIMETAZIDINE DIHYDROCHLORIDE
     Dates: start: 201401
  10. ATOSSA [Concomitant]
     Dates: start: 20190820
  11. PEMBROLIZUMAB. [Suspect]
     Active Substance: PEMBROLIZUMAB
     Indication: TRANSITIONAL CELL CARCINOMA
     Route: 041
     Dates: start: 20190716, end: 20190806
  12. NEUROL [Concomitant]
     Dates: start: 201501

REACTIONS (1)
  - Loss of consciousness [Recovered/Resolved]

NARRATIVE: CASE EVENT DATE: 20190913
